FAERS Safety Report 21459758 (Version 2)
Quarter: 2022Q4

REPORT INFORMATION
  Report Type: Spontaneous
  Country: US (occurrence: US)
  Receive Date: 20221014
  Receipt Date: 20221116
  Transmission Date: 20230113
  Serious: Yes (Death, Other)
  Sender: FDA-Public Use
  Company Number: US-HORIZON THERAPEUTICS-HZN-2022-007934

PATIENT

DRUGS (1)
  1. KRYSTEXXA [Suspect]
     Active Substance: PEGLOTICASE
     Indication: Gout
     Dosage: 8 MG, FIRST INFUSION
     Route: 042
     Dates: start: 20221010

REACTIONS (4)
  - Death [Fatal]
  - Anxiety [Unknown]
  - Pain [Unknown]
  - Restlessness [Unknown]

NARRATIVE: CASE EVENT DATE: 20221010
